FAERS Safety Report 8773635 (Version 2)
Quarter: 2012Q4

REPORT INFORMATION
  Report Type: 
  Country: PH (occurrence: PH)
  Receive Date: 20120907
  Receipt Date: 20120912
  Transmission Date: 20130627
  Serious: Yes (Hospitalization, Other)
  Sender: FDA-Public Use
  Company Number: PHHY2012PH077396

PATIENT
  Age: 87 Year
  Sex: Female

DRUGS (2)
  1. ACLASTA [Suspect]
     Dosage: 5 mg/100ml
     Route: 042
     Dates: start: 20120831
  2. TELMISARTAN [Concomitant]
     Indication: HYPERTENSION

REACTIONS (13)
  - Arrhythmia [Unknown]
  - Dyspnoea [Unknown]
  - Cardiac disorder [Unknown]
  - Blood creatinine increased [Unknown]
  - Abdominal pain upper [Unknown]
  - Joint swelling [Unknown]
  - Pyrexia [Unknown]
  - Feeling hot [Unknown]
  - Decreased appetite [Unknown]
  - Vertigo [Unknown]
  - Dizziness [Unknown]
  - Vomiting [Unknown]
  - Nausea [Recovered/Resolved]
